FAERS Safety Report 8462768-7 (Version None)
Quarter: 2012Q2

REPORT INFORMATION
  Report Type: 
  Country: None (occurrence: None)
  Receive Date: 20120619
  Receipt Date: 20120619
  Transmission Date: 20120825
  Serious: No
  Sender: FDA-Public Use
  Company Number: None

PATIENT
  Sex: Male

DRUGS (1)
  1. SUTENT [Suspect]
     Indication: MALIGNANT URINARY TRACT NEOPLASM
     Dosage: 50MG DAILY PO
     Route: 048
     Dates: start: 20120403, end: 20120528

REACTIONS (4)
  - APPETITE DISORDER [None]
  - VOMITING [None]
  - DIARRHOEA [None]
  - NO THERAPEUTIC RESPONSE [None]
